FAERS Safety Report 10332189 (Version 3)
Quarter: 2015Q2

REPORT INFORMATION
  Report Type: Spontaneous
  Country: US (occurrence: US)
  Receive Date: 20140722
  Receipt Date: 20150526
  Transmission Date: 20150821
  Serious: Yes (Other)
  Sender: FDA-Public Use
  Company Number: US-BAYER-2014-108033

PATIENT
  Age: 18 Year
  Sex: Female
  Weight: 67.98 kg

DRUGS (9)
  1. YASMIN [Suspect]
     Active Substance: DROSPIRENONE\ETHINYL ESTRADIOL
     Indication: CONTRACEPTION
     Dosage: UNK
     Dates: start: 200103, end: 20010614
  2. TORADOL [Concomitant]
     Active Substance: KETOROLAC TROMETHAMINE
     Indication: PAIN IN EXTREMITY
  3. YASMIN [Suspect]
     Active Substance: DROSPIRENONE\ETHINYL ESTRADIOL
     Indication: CONTRACEPTION
     Dosage: UNK
     Dates: start: 20010526, end: 20010614
  4. AUGMENTIN [Concomitant]
     Active Substance: AMOXICILLIN\CLAVULANATE POTASSIUM
     Indication: ANTIBIOTIC LEVEL
     Dosage: 875 MG, UNK
     Dates: start: 20010507
  5. GUAIFENEX [Concomitant]
     Active Substance: GUAIFENESIN\PHENYLEPHRINE\PHENYLPROPANOLAMINE
     Indication: NASOPHARYNGITIS
     Dosage: 600/120
     Dates: start: 20010526, end: 20010606
  6. IBUPROFEN. [Concomitant]
     Active Substance: IBUPROFEN
     Indication: PAIN IN EXTREMITY
  7. AUGMENTIN [Concomitant]
     Active Substance: AMOXICILLIN\CLAVULANATE POTASSIUM
     Indication: ANTIBIOTIC LEVEL
     Dosage: 875 MG, UNK
     Dates: start: 20010526, end: 20110527
  8. GUAIFENEX [Concomitant]
     Active Substance: GUAIFENESIN\PHENYLEPHRINE\PHENYLPROPANOLAMINE
     Indication: NASOPHARYNGITIS
     Dosage: 600/120
     Dates: start: 20010507
  9. ROBAXIN [Concomitant]
     Active Substance: METHOCARBAMOL
     Indication: PAIN IN EXTREMITY

REACTIONS (9)
  - High risk pregnancy [None]
  - Gait disturbance [None]
  - Deep vein thrombosis [None]
  - Peripheral swelling [None]
  - Anxiety [None]
  - General physical health deterioration [None]
  - Injury [None]
  - Emotional distress [None]
  - Pain in extremity [None]

NARRATIVE: CASE EVENT DATE: 20010614
